FAERS Safety Report 5008920-4 (Version None)
Quarter: 2006Q2

REPORT INFORMATION
  Report Type: 
  Country: None (occurrence: None)
  Receive Date: 20060518
  Receipt Date: 20060504
  Transmission Date: 20061013
  Serious: Yes (Hospitalization)
  Sender: FDA-Public Use
  Company Number: US017456

PATIENT
  Age: 61 Year
  Sex: Female

DRUGS (2)
  1. PROVIGIL [Suspect]
     Indication: FATIGUE
     Dosage: 200 MG QD ORAL
     Route: 048
  2. OXYCODONE [Concomitant]

REACTIONS (2)
  - DIZZINESS [None]
  - LOSS OF CONTROL OF LEGS [None]
